FAERS Safety Report 11813287 (Version 1)
Quarter: 2015Q4

REPORT INFORMATION
  Report Type: Spontaneous
  Country: US (occurrence: None)
  Receive Date: 20151208
  Receipt Date: 20151208
  Transmission Date: 20160305
  Serious: Yes (Hospitalization)
  Sender: FDA-Public Use
  Company Number: None

PATIENT
  Age: 82 Year
  Sex: Male

DRUGS (9)
  1. PLAVIX [Concomitant]
     Active Substance: CLOPIDOGREL BISULFATE
  2. PROSCAR [Concomitant]
     Active Substance: FINASTERIDE
  3. ECOTRIN [Concomitant]
     Active Substance: ASPIRIN
  4. PERICOLACE [Concomitant]
  5. CIPROFLOXACIN. [Suspect]
     Active Substance: CIPROFLOXACIN
     Indication: URINARY TRACT INFECTION
     Route: 048
  6. CRESTOR [Concomitant]
     Active Substance: ROSUVASTATIN CALCIUM
  7. APAP [Concomitant]
     Active Substance: ACETAMINOPHEN
  8. COLACE [Concomitant]
     Active Substance: DOCUSATE SODIUM
  9. PROAMATINE [Concomitant]
     Active Substance: MIDODRINE HYDROCHLORIDE

REACTIONS (3)
  - Neutropenia [None]
  - Drug hypersensitivity [None]
  - Acute kidney injury [None]

NARRATIVE: CASE EVENT DATE: 20150228
